FAERS Safety Report 5334428-2 (Version None)
Quarter: 2007Q2

REPORT INFORMATION
  Report Type: 
  Country: None (occurrence: None)
  Receive Date: 20070523
  Receipt Date: 20070523
  Transmission Date: 20071010
  Serious: Yes (Other)
  Sender: FDA-Public Use
  Company Number: None

PATIENT
  Sex: Female

DRUGS (7)
  1. PHOSPHOSODA FLAVOR NOT SPECIFIED [Suspect]
     Indication: COLONOSCOPY
     Dosage: PO
     Route: 048
     Dates: start: 20050517
  2. HYDROCHLOROTHIAZIDE [Concomitant]
  3. NORVASC [Concomitant]
  4. LIPITOR [Concomitant]
  5. COZAAR [Concomitant]
  6. CLIMARA [Concomitant]
  7. ADVAIR DISKUS 100/50 [Concomitant]

REACTIONS (8)
  - ANAEMIA [None]
  - BLOOD CALCIUM INCREASED [None]
  - BLOOD ERYTHROPOIETIN DECREASED [None]
  - BLOOD PHOSPHORUS INCREASED [None]
  - BLOOD PRESSURE INCREASED [None]
  - HEADACHE [None]
  - HYPOVOLAEMIA [None]
  - RENAL FAILURE ACUTE [None]
